FAERS Safety Report 8362411-1 (Version None)
Quarter: 2012Q2

REPORT INFORMATION
  Report Type: 
  Country: None (occurrence: None)
  Receive Date: 20120516
  Receipt Date: 20120508
  Transmission Date: 20120825
  Serious: No
  Sender: FDA-Public Use
  Company Number: US-BIOGENIDEC-2012BI016474

PATIENT
  Sex: Female

DRUGS (1)
  1. TYSABRI [Suspect]
     Indication: MULTIPLE SCLEROSIS
     Route: 042
     Dates: start: 20120324

REACTIONS (5)
  - FAECAL INCONTINENCE [None]
  - URINARY INCONTINENCE [None]
  - MAJOR DEPRESSION [None]
  - MICTURITION URGENCY [None]
  - DIARRHOEA [None]
